FAERS Safety Report 7537004-6 (Version None)
Quarter: 2011Q2

REPORT INFORMATION
  Report Type: 
  Country: None (occurrence: None)
  Receive Date: 20110609
  Receipt Date: 20110602
  Transmission Date: 20111010
  Serious: Yes (Other)
  Sender: FDA-Public Use
  Company Number: PHHY2011DK48424

PATIENT

DRUGS (1)
  1. DICLOFENAC SODIUM [Suspect]
     Indication: OSTEOARTHRITIS
     Dosage: 50 MG, TID
     Route: 048

REACTIONS (9)
  - GASTROINTESTINAL DISORDER [None]
  - GASTRIC ULCER [None]
  - ABDOMINAL PAIN UPPER [None]
  - HYPOCHROMIC ANAEMIA [None]
  - ABDOMINAL PAIN LOWER [None]
  - WEIGHT DECREASED [None]
  - FIBROSIS [None]
  - LYMPHADENOPATHY [None]
  - DIARRHOEA [None]
